FAERS Safety Report 18262680 (Version 1)
Quarter: 2020Q3

REPORT INFORMATION
  Report Type: Spontaneous
  Country: US (occurrence: US)
  Receive Date: 20200914
  Receipt Date: 20200914
  Transmission Date: 20201103
  Serious: Yes (Hospitalization)
  Sender: FDA-Public Use
  Company Number: None

PATIENT
  Age: 24 Year
  Sex: Male
  Weight: 80.7 kg

DRUGS (15)
  1. DIPHENHYDRAMINE. [Concomitant]
     Active Substance: DIPHENHYDRAMINE
     Dates: start: 20200909, end: 20200913
  2. BIOK PLUS [Concomitant]
     Dates: start: 20200909, end: 20200913
  3. FLUTICASONE/VILANTEROL [Concomitant]
     Active Substance: FLUTICASONE FUROATE\VILANTEROL TRIFENATATE
     Dates: start: 20200909, end: 20200913
  4. PIPERACILLIN/TAZOBACTAM [Concomitant]
     Active Substance: PIPERACILLIN SODIUM\TAZOBACTAM SODIUM
     Dates: start: 20200909, end: 20200913
  5. MVI [Concomitant]
     Active Substance: VITAMINS
     Dates: start: 20200909, end: 20200913
  6. ACETAMINOPHEN. [Concomitant]
     Active Substance: ACETAMINOPHEN
     Dates: start: 20200909, end: 20200912
  7. FOLIC ACID. [Concomitant]
     Active Substance: FOLIC ACID
     Dates: start: 20200909, end: 20200913
  8. VALACYCLOVIR [Concomitant]
     Active Substance: VALACYCLOVIR HYDROCHLORIDE
     Dates: start: 20200909, end: 20200913
  9. REMDESIVIR. [Suspect]
     Active Substance: REMDESIVIR
     Indication: COVID-19
     Dosage: ?          OTHER FREQUENCY:ONE TIME ONLY;?
     Route: 042
     Dates: start: 20200909, end: 20200910
  10. DEXAMETHASONE. [Concomitant]
     Active Substance: DEXAMETHASONE
     Dates: start: 20200909, end: 20200913
  11. ENOXAPARIN [Concomitant]
     Active Substance: ENOXAPARIN
     Dates: start: 20200908, end: 20200913
  12. IOPAMIDOL 76% [Concomitant]
     Dates: start: 20200908, end: 20200908
  13. MORPHINE [Concomitant]
     Active Substance: MORPHINE
     Dates: start: 20200908, end: 20200910
  14. ONDANSETRON [Concomitant]
     Active Substance: ONDANSETRON
     Dates: end: 20200913
  15. OXYCODONE [Concomitant]
     Active Substance: OXYCODONE
     Dates: start: 20200908, end: 20200910

REACTIONS (5)
  - Blood bilirubin increased [None]
  - Aspartate aminotransferase increased [None]
  - Alanine aminotransferase increased [None]
  - Therapy interrupted [None]
  - Blood alkaline phosphatase increased [None]

NARRATIVE: CASE EVENT DATE: 20200910
